FAERS Safety Report 5709943-X (Version None)
Quarter: 2008Q2

REPORT INFORMATION
  Report Type: 
  Country: None (occurrence: None)
  Receive Date: 20080418
  Receipt Date: 20080409
  Transmission Date: 20081010
  Serious: Yes (Life-Threatening)
  Sender: FDA-Public Use
  Company Number: DE-JNJFOC-20080401897

PATIENT
  Age: 17 Year
  Sex: Female

DRUGS (8)
  1. REMICADE [Suspect]
     Route: 042
  2. REMICADE [Suspect]
     Route: 042
  3. REMICADE [Suspect]
     Indication: CROHN'S DISEASE
     Route: 042
  4. PREDNISOLONE [Concomitant]
     Indication: PREMEDICATION
     Route: 042
  5. CLEMASTINE FUMARATE [Concomitant]
     Indication: PREMEDICATION
     Route: 042
  6. RANITIDINE [Concomitant]
     Indication: PREMEDICATION
     Route: 042
  7. AZATHIOPRINE [Concomitant]
     Indication: DRUG USE FOR UNKNOWN INDICATION
  8. 5 ASA [Concomitant]
     Indication: DRUG USE FOR UNKNOWN INDICATION

REACTIONS (3)
  - BRONCHOSPASM [None]
  - INFUSION RELATED REACTION [None]
  - SHOCK [None]
